FAERS Safety Report 9075889 (Version 2)
Quarter: 2013Q1

REPORT INFORMATION
  Report Type: Spontaneous
  Country: CL (occurrence: CL)
  Receive Date: 20130130
  Receipt Date: 20130320
  Transmission Date: 20140127
  Serious: Yes (Death, Hospitalization)
  Sender: FDA-Public Use
  Company Number: CL-UCBSA-076909

PATIENT
  Age: 8 Year
  Sex: Male

DRUGS (51)
  1. KEPPRA [Suspect]
     Indication: GRAND MAL CONVULSION
     Route: 048
     Dates: start: 20130103, end: 20130107
  2. KEPPRA [Suspect]
     Indication: STATUS EPILEPTICUS
     Route: 048
     Dates: start: 20130103, end: 20130107
  3. KEPPRA [Suspect]
     Indication: CONVULSION
     Route: 048
     Dates: start: 20130103, end: 20130107
  4. KEPPRA [Suspect]
     Indication: GRAND MAL CONVULSION
     Dosage: UNKNOWN
     Route: 042
     Dates: start: 20130110
  5. KEPPRA [Suspect]
     Indication: CONVULSION
     Dosage: UNKNOWN
     Route: 042
     Dates: start: 20130110
  6. KEPPRA [Suspect]
     Indication: STATUS EPILEPTICUS
     Dosage: UNKNOWN
     Route: 042
     Dates: start: 20130110
  7. PHENYTOIN [Suspect]
     Indication: STATUS EPILEPTICUS
     Dosage: UNKNOWN
     Dates: start: 201301
  8. PHENYTOIN [Suspect]
     Indication: GRAND MAL CONVULSION
     Dosage: UNKNOWN
     Dates: start: 201301
  9. PHENYTOIN [Suspect]
     Indication: CONVULSION
     Dosage: UNKNOWN
     Dates: start: 201301
  10. MIDAZOLAM [Suspect]
     Indication: STATUS EPILEPTICUS
     Dosage: UNKNOWN
     Dates: start: 201301
  11. MIDAZOLAM [Suspect]
     Indication: GRAND MAL CONVULSION
     Dosage: UNKNOWN
     Dates: start: 201301
  12. MIDAZOLAM [Suspect]
     Indication: CONVULSION
     Dosage: UNKNOWN
     Dates: start: 201301
  13. FENOBARBITOL [Suspect]
     Indication: STATUS EPILEPTICUS
     Dosage: UNKNOWN
     Dates: start: 201301
  14. FENOBARBITOL [Suspect]
     Indication: GRAND MAL CONVULSION
     Dosage: UNKNOWN
     Dates: start: 201301
  15. FENOBARBITOL [Suspect]
     Indication: CONVULSION
     Dosage: UNKNOWN
     Dates: start: 201301
  16. THIOPENTAL [Suspect]
     Indication: STATUS EPILEPTICUS
     Dosage: UNKNOWN
     Dates: start: 201301
  17. THIOPENTAL [Suspect]
     Indication: GRAND MAL CONVULSION
     Dosage: UNKNOWN
     Dates: start: 201301
  18. THIOPENTAL [Suspect]
     Indication: CONVULSION
     Dosage: UNKNOWN
     Dates: start: 201301
  19. TOPIRAMATE [Suspect]
     Indication: STATUS EPILEPTICUS
     Dosage: UNKNOWN
     Dates: start: 201301
  20. TOPIRAMATE [Suspect]
     Indication: CONVULSION
     Dosage: UNKNOWN
     Dates: start: 201301
  21. TOPIRAMATE [Suspect]
     Indication: GRAND MAL CONVULSION
     Dosage: UNKNOWN
     Dates: start: 201301
  22. CARBAMAZEPINE [Suspect]
     Indication: STATUS EPILEPTICUS
     Dosage: UNKNOWN
     Dates: start: 201301
  23. CARBAMAZEPINE [Suspect]
     Indication: GRAND MAL CONVULSION
     Dosage: UNKNOWN
     Dates: start: 201301
  24. CARBAMAZEPINE [Suspect]
     Indication: CONVULSION
     Dosage: UNKNOWN
     Dates: start: 201301
  25. VALPROIC ACID [Suspect]
     Indication: STATUS EPILEPTICUS
     Dosage: DAILY DOSE: 30 MG/KG
     Dates: start: 201301
  26. VALPROIC ACID [Suspect]
     Indication: CONVULSION
     Dosage: DAILY DOSE: 30 MG/KG
     Dates: start: 201301
  27. VALPROIC ACID [Suspect]
     Indication: GRAND MAL CONVULSION
     Dosage: DAILY DOSE: 30 MG/KG
     Dates: start: 201301
  28. AMOXICILLIN TRIHYDRATE [Concomitant]
     Dosage: UNKNOWN
     Dates: start: 20121228
  29. PHENOXYMETHYLPENICILLIN K [Concomitant]
     Dosage: UNKNOWN
     Dates: start: 20121228
  30. ACYCLOVIR [Concomitant]
     Indication: HAEMODYNAMIC INSTABILITY
     Dosage: UNKNOWN
     Dates: start: 201301
  31. ACYCLOVIR [Concomitant]
     Indication: VIRAL INFECTION
     Dosage: UNKNOWN
     Dates: start: 201301
  32. METHYLPREDNISOLONE [Concomitant]
     Indication: VIRAL INFECTION
     Dosage: UNKNOWN
     Dates: start: 201301
  33. METHYLPREDNISOLONE [Concomitant]
     Indication: HAEMODYNAMIC INSTABILITY
     Dosage: UNKNOWN
     Dates: start: 201301
  34. DOBUTAMINE [Concomitant]
     Indication: HAEMODYNAMIC INSTABILITY
     Dosage: UNKNOWN
     Dates: start: 201301
  35. DOBUTAMINE [Concomitant]
     Indication: VIRAL INFECTION
     Dosage: UNKNOWN
     Dates: start: 201301
  36. DOPAMINE [Concomitant]
     Indication: HAEMODYNAMIC INSTABILITY
     Dosage: UNKNOWN
     Dates: start: 201301
  37. DOPAMINE [Concomitant]
     Indication: VIRAL INFECTION
     Dosage: UNKNOWN
     Dates: start: 201301
  38. CLINDAMYCIN [Concomitant]
     Indication: VIRAL INFECTION
     Dosage: UNKNOWN
     Dates: start: 201301
  39. CLINDAMYCIN [Concomitant]
     Indication: HAEMODYNAMIC INSTABILITY
     Dosage: UNKNOWN
     Dates: start: 201301
  40. VANCOMYCINE [Concomitant]
     Indication: VIRAL INFECTION
     Dosage: UNKNOWN
     Dates: start: 201301
  41. VANCOMYCINE [Concomitant]
     Indication: HAEMODYNAMIC INSTABILITY
     Dosage: UNKNOWN
     Dates: start: 201301
  42. MEROPENEM [Concomitant]
     Indication: HAEMODYNAMIC INSTABILITY
     Dosage: UNKNOWN
     Dates: start: 201301
  43. MEROPENEM [Concomitant]
     Indication: VIRAL INFECTION
     Dosage: UNKNOWN
     Dates: start: 201301
  44. CEFOTAXIME [Concomitant]
     Indication: HAEMODYNAMIC INSTABILITY
     Dosage: UNKNOWN
     Dates: start: 201301
  45. CEFOTAXIME [Concomitant]
     Indication: VIRAL INFECTION
     Dosage: UNKNOWN
     Dates: start: 201301
  46. NORMAL IMMUNOGLOBULIN [Concomitant]
     Indication: VIRAL INFECTION
     Dosage: UNKNOWN
     Dates: start: 201301
  47. NORMAL IMMUNOGLOBULIN [Concomitant]
     Indication: HAEMODYNAMIC INSTABILITY
     Dosage: UNKNOWN
     Dates: start: 201301
  48. ADRENALINE [Concomitant]
     Indication: HAEMODYNAMIC INSTABILITY
     Dosage: UNKNOWN
     Dates: start: 201301
  49. ADRENALINE [Concomitant]
     Indication: VIRAL INFECTION
     Dosage: UNKNOWN
     Dates: start: 201301
  50. NORADRENALINE [Concomitant]
     Indication: VIRAL INFECTION
     Dosage: UNKNOWN
     Dates: start: 201301
  51. NORADRENALINE [Concomitant]
     Indication: HAEMODYNAMIC INSTABILITY
     Dosage: UNKNOWN
     Dates: start: 201301

REACTIONS (11)
  - Death [Fatal]
  - Renal failure [Fatal]
  - Multi-organ failure [Fatal]
  - Respiratory failure [Fatal]
  - Hepatic failure [Fatal]
  - Coagulopathy [Fatal]
  - Hepatic function abnormal [Fatal]
  - Haemodynamic instability [Fatal]
  - Hyperthermia [Fatal]
  - Hyperkalaemia [Fatal]
  - Drug ineffective for unapproved indication [Unknown]
